FAERS Safety Report 6093855-9 (Version None)
Quarter: 2009Q1

REPORT INFORMATION
  Report Type: 
  Country: None (occurrence: None)
  Receive Date: 20090226
  Receipt Date: 20090224
  Transmission Date: 20090719
  Serious: Yes (Other)
  Sender: FDA-Public Use
  Company Number: JP-PFIZER INC-2009174974

PATIENT

DRUGS (3)
  1. CARDENALIN [Suspect]
     Dosage: 2 MG DAILY
     Route: 048
  2. DIGOSIN [Concomitant]
     Dosage: UNK
  3. ADALAT CC [Concomitant]
     Dosage: UNK

REACTIONS (1)
  - FAECES DISCOLOURED [None]
